FAERS Safety Report 10398922 (Version 1)
Quarter: 2014Q3

REPORT INFORMATION
  Report Type: Report from Study
  Country: BR (occurrence: BR)
  Receive Date: 20140821
  Receipt Date: 20140821
  Transmission Date: 20150326
  Serious: Yes (Death, Hospitalization)
  Sender: FDA-Public Use
  Company Number: BR-BAYER-2014-120135

PATIENT
  Age: 67 Year
  Sex: Male

DRUGS (1)
  1. NEXAVAR [Suspect]
     Active Substance: SORAFENIB
     Indication: HEPATIC CANCER
     Dosage: 200 MG, BID
     Route: 048

REACTIONS (8)
  - Respiratory failure [Fatal]
  - Hepatic cirrhosis [Fatal]
  - Oncologic complication [Fatal]
  - Dyspnoea [Not Recovered/Not Resolved]
  - Hepatitis B [Fatal]
  - Diarrhoea [Not Recovered/Not Resolved]
  - Diabetes mellitus [Fatal]
  - Unevaluable event [Fatal]
